FAERS Safety Report 7352334-9 (Version None)
Quarter: 2011Q1

REPORT INFORMATION
  Report Type: 
  Country: None (occurrence: None)
  Receive Date: 20110309
  Receipt Date: 20110309
  Transmission Date: 20110831
  Serious: Yes (Other)
  Sender: FDA-Public Use
  Company Number: None

PATIENT
  Sex: Female

DRUGS (1)
  1. REMERON [Suspect]
     Indication: SLEEP DISORDER
     Dosage: 7.5 MG ONCE NIGHTLY PO
     Route: 048
     Dates: start: 20110119, end: 20110307

REACTIONS (1)
  - HALLUCINATION, VISUAL [None]
